FAERS Safety Report 8318973-3 (Version None)
Quarter: 2012Q2

REPORT INFORMATION
  Report Type: 
  Country: None (occurrence: None)
  Receive Date: 20120427
  Receipt Date: 20120419
  Transmission Date: 20120825
  Serious: Yes (Other)
  Sender: FDA-Public Use
  Company Number: US-JNJFOC-20120409422

PATIENT
  Sex: Female

DRUGS (3)
  1. ENTOCORT EC [Concomitant]
  2. REMICADE [Suspect]
     Route: 042
  3. REMICADE [Suspect]
     Indication: CROHN'S DISEASE
     Dosage: 4-5 INFUSIONS RECENTLY (DATES UNSPECIFIED)
     Route: 042

REACTIONS (3)
  - VITREOUS FLOATERS [None]
  - VISION BLURRED [None]
  - VISUAL IMPAIRMENT [None]
